FAERS Safety Report 5882281-0 (Version None)
Quarter: 2008Q3

REPORT INFORMATION
  Report Type: 
  Country: None (occurrence: None)
  Receive Date: 20080912
  Receipt Date: 20080725
  Transmission Date: 20090109
  Serious: No
  Sender: FDA-Public Use
  Company Number: US-ABBOTT-08P-163-0466893-00

PATIENT
  Sex: Female
  Weight: 51.302 kg

DRUGS (9)
  1. HUMIRA [Suspect]
     Indication: RHEUMATOID ARTHRITIS
     Route: 058
     Dates: start: 20071101
  2. HUMIRA [Suspect]
     Indication: RHEUMATOID ARTHRITIS
     Dates: start: 20080501
  3. METHOTREXATE [Concomitant]
     Indication: RHEUMATOID ARTHRITIS
     Route: 050
     Dates: start: 20050101
  4. ^HYDROCHLOROT^ [Concomitant]
     Indication: HYPERTENSION
     Route: 048
     Dates: start: 20070101
  5. ^HYDROCHLOROT^ [Concomitant]
     Indication: FLUID RETENTION
  6. ^HYDROCHLOROT^ [Concomitant]
     Indication: DIURETIC THERAPY
  7. FOLIC ACID [Concomitant]
     Indication: RHEUMATOID ARTHRITIS
     Route: 048
     Dates: start: 20050101
  8. MORPHINE SULFATE [Concomitant]
     Indication: RHEUMATOID ARTHRITIS
     Route: 048
     Dates: start: 20060101
  9. OXYCODONE HCL [Concomitant]
     Indication: PAIN
     Route: 048
     Dates: start: 20040101

REACTIONS (5)
  - ACCIDENTAL EXPOSURE [None]
  - DRUG DOSE OMISSION [None]
  - INJECTION SITE PAIN [None]
  - IRON DEFICIENCY [None]
  - VITAMIN D DEFICIENCY [None]
